FAERS Safety Report 7665955-0 (Version None)
Quarter: 2011Q3

REPORT INFORMATION
  Report Type: 
  Country: None (occurrence: None)
  Receive Date: 20110806
  Receipt Date: 20110621
  Transmission Date: 20111222
  Serious: No
  Sender: FDA-Public Use
  Company Number: US-ABBOTT-11P-163-0734269-00

PATIENT
  Sex: Female
  Weight: 74.002 kg

DRUGS (6)
  1. ESTRADIOL [Concomitant]
     Indication: HORMONE REPLACEMENT THERAPY
  2. ZOLPIDEM [Concomitant]
     Indication: POOR QUALITY SLEEP
  3. NEXIUM [Concomitant]
     Indication: GASTROOESOPHAGEAL REFLUX DISEASE
  4. NIASPAN [Suspect]
     Indication: BLOOD TRIGLYCERIDES INCREASED
     Dates: start: 20110301, end: 20110617
  5. LISINOPRIL [Concomitant]
     Indication: CARDIOMYOPATHY
  6. CARVIDOLOL [Concomitant]
     Indication: CARDIOMYOPATHY

REACTIONS (3)
  - BURNING SENSATION [None]
  - PRURITUS [None]
  - DIZZINESS [None]
